FAERS Safety Report 11036869 (Version 1)
Quarter: 2015Q2

REPORT INFORMATION
  Report Type: Spontaneous
  Country: US (occurrence: None)
  Receive Date: 20150415
  Receipt Date: 20150415
  Transmission Date: 20150821
  Serious: Yes (Other)
  Sender: FDA-Public Use
  Company Number: None

PATIENT
  Age: 67 Year
  Sex: Female
  Weight: 65.77 kg

DRUGS (9)
  1. PREFEST [Concomitant]
     Active Substance: ESTRADIOL\NORGESTIMATE
  2. AREDS2 [Concomitant]
  3. CELECOXIB 200MG TEVAU [Suspect]
     Active Substance: CELECOXIB
     Indication: ARTHRALGIA
     Route: 048
  4. ASA [Concomitant]
     Active Substance: ASPIRIN
  5. CELEBREX [Concomitant]
     Active Substance: CELECOXIB
  6. NEXIUM [Concomitant]
     Active Substance: ESOMEPRAZOLE MAGNESIUM
  7. LISINOPRIL. [Concomitant]
     Active Substance: LISINOPRIL
  8. HYDROCHLOROTHIAZIDE. [Concomitant]
     Active Substance: HYDROCHLOROTHIAZIDE
  9. VIT. D [Concomitant]

REACTIONS (5)
  - Discomfort [None]
  - Arthralgia [None]
  - Quality of life decreased [None]
  - Condition aggravated [None]
  - Product substitution issue [None]
